FAERS Safety Report 18955516 (Version 2)
Quarter: 2021Q2

REPORT INFORMATION
  Report Type: Spontaneous
  Country: DK (occurrence: DK)
  Receive Date: 20210302
  Receipt Date: 20210629
  Transmission Date: 20210717
  Serious: Yes (Other)
  Sender: FDA-Public Use
  Company Number: DK-AUROBINDO-AUR-APL-2019-056719

PATIENT
  Age: 79 Year
  Sex: Male

DRUGS (2)
  1. CLOPIDOGREL [Concomitant]
     Active Substance: CLOPIDOGREL BISULFATE
     Indication: THROMBOSIS PROPHYLAXIS
     Dosage: 75 MILLIGRAM, ONCE A DAY
     Route: 048
     Dates: start: 20180227
  2. LAMOTRIGINE TABLETS 100MG [Suspect]
     Active Substance: LAMOTRIGINE
     Indication: EPILEPSY
     Dosage: 200 MILLIGRAM, ONCE A DAY
     Route: 048
     Dates: start: 20181130

REACTIONS (8)
  - Pain in extremity [Recovered/Resolved]
  - Nail growth abnormal [Recovered/Resolved]
  - Arthralgia [Recovered/Resolved]
  - Thrombosis [Unknown]
  - Pruritus [Recovered/Resolved]
  - Monoparesis [Unknown]
  - Haematoma [Unknown]
  - Rash [Recovered/Resolved]
